FAERS Safety Report 5089483-4 (Version None)
Quarter: 2006Q3

REPORT INFORMATION
  Report Type: 
  Country: None (occurrence: None)
  Receive Date: 20060822
  Receipt Date: 20060804
  Transmission Date: 20061208
  Serious: Yes (Hospitalization)
  Sender: FDA-Public Use
  Company Number: DSA_28577_2006

PATIENT
  Age: 49 Year
  Sex: Female

DRUGS (2)
  1. TEMESTA [Suspect]
     Dosage: 50 MG ONCE PO
     Route: 048
     Dates: start: 20060122, end: 20060122
  2. DEPAKENE [Suspect]
     Dosage: DF ONCE PO
     Route: 048
     Dates: start: 20060122, end: 20060122

REACTIONS (5)
  - MULTIPLE DRUG OVERDOSE INTENTIONAL [None]
  - SOMNOLENCE [None]
  - SOPOR [None]
  - SUICIDE ATTEMPT [None]
  - URINARY TRACT INFECTION [None]
